FAERS Safety Report 6843064-8 (Version None)
Quarter: 2010Q3

REPORT INFORMATION
  Report Type: 
  Country: None (occurrence: None)
  Receive Date: 20100712
  Receipt Date: 20100630
  Transmission Date: 20110219
  Serious: Yes (Hospitalization)
  Sender: FDA-Public Use
  Company Number: 014996

PATIENT
  Sex: Male
  Weight: 70.3 kg

DRUGS (5)
  1. KEPPRA [Suspect]
     Indication: CONVULSION
     Dosage: 3500 MG ORAL; 3000 MG ORAL
     Route: 048
     Dates: start: 20080101, end: 20100501
  2. KEPPRA [Suspect]
     Indication: CONVULSION
     Dosage: 3500 MG ORAL; 3000 MG ORAL
     Route: 048
     Dates: start: 20100501
  3. B RAF (INVESTIGATIONAL DRUG) [Suspect]
     Indication: NEOPLASM MALIGNANT
     Dates: start: 20100501, end: 20100607
  4. AVASTIN [Concomitant]
  5. PAXIL [Concomitant]

REACTIONS (7)
  - ASTHENIA [None]
  - FATIGUE [None]
  - METASTASES TO ABDOMINAL CAVITY [None]
  - METASTASES TO LUNG [None]
  - NAUSEA [None]
  - RESTLESSNESS [None]
  - WEIGHT DECREASED [None]
